FAERS Safety Report 5068921-7 (Version None)
Quarter: 2006Q3

REPORT INFORMATION
  Report Type: 
  Country: None (occurrence: None)
  Receive Date: 20060728
  Receipt Date: 20060713
  Transmission Date: 20061208
  Serious: Yes (Hospitalization, Other)
  Sender: FDA-Public Use
  Company Number: GB200606005921

PATIENT
  Age: 73 Year
  Sex: Male
  Weight: 98.4 kg

DRUGS (16)
  1. HUMALOG MIX 75/25 [Suspect]
     Indication: DIABETES MELLITUS
     Dosage: SEE IMAGE
     Route: 058
     Dates: start: 19980101
  2. HUMALOG MIX 75/25 [Suspect]
     Indication: DIABETES MELLITUS
     Dosage: SEE IMAGE
     Route: 058
     Dates: start: 19980101
  3. GLYCERYL TRINITRATE [Concomitant]
  4. NICROANDIL [Concomitant]
  5. CELIPROLOL [Concomitant]
  6. ACETYLSALICYLIC ACID SRT [Concomitant]
  7. SIMVASTATIN [Concomitant]
  8. ALLOPURINOL [Concomitant]
  9. CO-CODAMOL (CODEINE PHOSPHATE, PARACETAMOL) [Concomitant]
  10. QUININE SULFATE [Concomitant]
  11. FLUOXETINE (FLUOXETINE HYDROCHLORIDE UNKNOWN MANUFACTURER) [Concomitant]
  12. LOSARTAN POSTASSIUM [Concomitant]
  13. LIPANTIL MICRO (FENOFIBRATE) [Concomitant]
  14. MOVICOL (MACROGOL, POTASSIUM CHLORIDE, SODIUM BICARBONATE, SODIUM CHLO [Concomitant]
  15. ISOSORBIDE MONONITRATE [Concomitant]
  16. AMLODIPINE [Concomitant]

REACTIONS (3)
  - ANGINA PECTORIS [None]
  - CORONARY ARTERY BYPASS [None]
  - HYPERTENSION [None]
